FAERS Safety Report 6219796-1 (Version None)
Quarter: 2009Q2

REPORT INFORMATION
  Report Type: 
  Country: None (occurrence: None)
  Receive Date: 20090609
  Receipt Date: 20090604
  Transmission Date: 20091009
  Serious: Yes (Disabling, Other)
  Sender: FDA-Public Use
  Company Number: B0577848A

PATIENT
  Sex: Male
  Weight: 59 kg

DRUGS (3)
  1. SERETIDE [Suspect]
     Indication: ASTHMA
  2. BERODUAL [Concomitant]
  3. ALBUTEROL [Concomitant]

REACTIONS (4)
  - ARRHYTHMIA [None]
  - DIZZINESS [None]
  - DYSPNOEA [None]
  - EXTRASYSTOLES [None]
